FAERS Safety Report 7126203-3 (Version None)
Quarter: 2010Q4

REPORT INFORMATION
  Report Type: 
  Country: None (occurrence: None)
  Receive Date: 20101129
  Receipt Date: 20101117
  Transmission Date: 20110411
  Serious: Yes (Disabling, Other)
  Sender: FDA-Public Use
  Company Number: GB-JNJFOC-20101102076

PATIENT
  Sex: Female
  Weight: 63.5 kg

DRUGS (1)
  1. KETOCONAZOLE [Suspect]
     Indication: TINEA VERSICOLOUR
     Route: 061

REACTIONS (4)
  - BLISTER [None]
  - PRURITUS [None]
  - RASH MACULAR [None]
  - THERMAL BURN [None]
